FAERS Safety Report 21711410 (Version 2)
Quarter: 2022Q4

REPORT INFORMATION
  Report Type: Spontaneous
  Country: US (occurrence: None)
  Receive Date: 20221212
  Receipt Date: 20221229
  Transmission Date: 20230113
  Serious: No
  Sender: FDA-Public Use
  Company Number: 2022A382462

PATIENT
  Age: 822 Month
  Sex: Female
  Weight: 74.8 kg

DRUGS (1)
  1. SYMBICORT [Suspect]
     Active Substance: BUDESONIDE\FORMOTEROL FUMARATE DIHYDRATE
     Dosage: 1 PUFF 2 TIMES A DAY, SINCE 2-3 YEARS AGO, 160 UG
     Route: 055

REACTIONS (11)
  - Food allergy [Not Recovered/Not Resolved]
  - Increased bronchial secretion [Unknown]
  - Productive cough [Unknown]
  - Condition aggravated [Unknown]
  - Dyspnoea [Unknown]
  - Off label use [Unknown]
  - Incorrect dose administered by device [Unknown]
  - Device malfunction [Unknown]
  - Product dose omission issue [Unknown]
  - Pharyngeal swelling [Unknown]
  - Headache [Unknown]

NARRATIVE: CASE EVENT DATE: 20211101
